FAERS Safety Report 15960654 (Version 1)
Quarter: 2019Q1

REPORT INFORMATION
  Report Type: Spontaneous
  Country: FR (occurrence: FR)
  Receive Date: 20190214
  Receipt Date: 20190214
  Transmission Date: 20190417
  Serious: Yes (Hospitalization)
  Sender: FDA-Public Use
  Company Number: FR-SUN PHARMACEUTICAL INDUSTRIES LTD-2019RR-199022

PATIENT
  Age: 37 Year
  Sex: Female
  Weight: 81.5 kg

DRUGS (4)
  1. TRAMADOL. [Suspect]
     Active Substance: TRAMADOL
     Indication: TOXICITY TO VARIOUS AGENTS
     Dosage: 1 GRAM, QD
     Route: 048
     Dates: start: 20190112, end: 20190112
  2. PARACETAMOL [Suspect]
     Active Substance: ACETAMINOPHEN
     Indication: TOXICITY TO VARIOUS AGENTS
     Dosage: 7 GRAM, IN TOTAL
     Route: 048
     Dates: start: 20190112, end: 20190112
  3. MERCALM, COMPRIME PELLICULE SECABLE [Suspect]
     Active Substance: CAFFEINE\DIMENHYDRINATE
     Indication: TOXICITY TO VARIOUS AGENTS
     Dosage: 9 DOSAGE FORM
     Route: 048
     Dates: start: 20190112, end: 20190112
  4. SERESTA 50 MG, COMPRIME SECABLE [Suspect]
     Active Substance: OXAZEPAM
     Indication: TOXICITY TO VARIOUS AGENTS
     Dosage: 20 DOSAGE FORM
     Route: 048
     Dates: start: 20190112, end: 20190112

REACTIONS (3)
  - Coma [Recovered/Resolved]
  - Bradypnoea [Recovered/Resolved]
  - Respiratory acidosis [Recovered/Resolved]

NARRATIVE: CASE EVENT DATE: 20190112
